FAERS Safety Report 9893621 (Version 1)
Quarter: 2014Q1

REPORT INFORMATION
  Report Type: Spontaneous
  Country: CH (occurrence: CH)
  Receive Date: 20140213
  Receipt Date: 20140213
  Transmission Date: 20141002
  Serious: Yes (Hospitalization, Other)
  Sender: FDA-Public Use
  Company Number: CH-ASTRAZENECA-2014SE08501

PATIENT
  Age: 77 Year
  Sex: Female

DRUGS (10)
  1. SEROQUEL [Suspect]
     Indication: DEPRESSION
     Route: 048
  2. IBUPROFEN [Interacting]
     Indication: PAIN
     Route: 048
     Dates: start: 20140104, end: 20140106
  3. LISINOPRIL [Interacting]
     Indication: ESSENTIAL HYPERTENSION
     Route: 048
     Dates: end: 20140106
  4. TRAMAL TROPFEN [Interacting]
     Indication: PAIN
     Route: 048
     Dates: start: 20140104, end: 20140106
  5. DISTRANEURIN [Interacting]
     Indication: DEPRESSION
     Route: 048
  6. ASPIRINE [Concomitant]
     Indication: PROPHYLACTIC CHEMOTHERAPY
     Route: 048
  7. ESOMEPRAZOLE [Concomitant]
     Indication: PROPHYLACTIC CHEMOTHERAPY
     Route: 048
  8. ESCITALOPRAM [Concomitant]
     Indication: DEPRESSION
     Route: 048
  9. DAFALGAN [Concomitant]
     Indication: PAIN
     Route: 048
     Dates: start: 20140104, end: 20140106
  10. CLEXANE [Concomitant]
     Indication: PROPHYLACTIC CHEMOTHERAPY
     Route: 058
     Dates: start: 20140105, end: 20140106

REACTIONS (15)
  - Drug interaction [Unknown]
  - Respiratory failure [Recovered/Resolved]
  - Hypercapnia [Recovered/Resolved]
  - Respiratory acidosis [Recovered/Resolved]
  - Pneumonia [Recovering/Resolving]
  - Renal failure acute [Recovered/Resolved]
  - Hyperkalaemia [Recovered/Resolved]
  - Fall [Unknown]
  - Toxicity to various agents [Unknown]
  - Contusion [Unknown]
  - Diverticulitis [Unknown]
  - Dyspnoea [Recovered/Resolved]
  - Hypotension [Recovered/Resolved]
  - Vomiting [Recovered/Resolved]
  - Drug prescribing error [Recovered/Resolved]
